FAERS Safety Report 8785045 (Version 2)
Quarter: 2012Q4

REPORT INFORMATION
  Report Type: 
  Country: US (occurrence: US)
  Receive Date: 20120914
  Receipt Date: 20121011
  Transmission Date: 20130627
  Serious: No
  Sender: FDA-Public Use
  Company Number: US-ASTRAZENECA-2012SE64789

PATIENT
  Age: 43 Year
  Sex: Male
  Weight: 146 kg

DRUGS (3)
  1. VIMOVO [Suspect]
     Indication: GASTROOESOPHAGEAL REFLUX DISEASE
     Dosage: 20/500,BID
     Route: 048
  2. VIMOVO [Suspect]
     Indication: OSTEOARTHRITIS
     Dosage: 20/500,BID
     Route: 048
  3. 12 MEDICATIONS [Concomitant]

REACTIONS (15)
  - Intervertebral disc degeneration [Unknown]
  - Hepatic steatosis [Unknown]
  - Lymphadenopathy mediastinal [Unknown]
  - Scoliosis [Unknown]
  - Nephrolithiasis [Unknown]
  - Road traffic accident [Unknown]
  - Excoriation [Unknown]
  - Contusion [Unknown]
  - Neck pain [Unknown]
  - Soft tissue disorder [Unknown]
  - Joint effusion [Unknown]
  - Nodule [Unknown]
  - Syndesmophyte [Unknown]
  - Arthralgia [Unknown]
  - Lymphadenopathy [Unknown]
